FAERS Safety Report 9684168 (Version 1)
Quarter: 2013Q4

REPORT INFORMATION
  Report Type: Spontaneous
  Country: US (occurrence: None)
  Receive Date: 20131111
  Receipt Date: 20131111
  Transmission Date: 20140711
  Serious: Yes (Disabling)
  Sender: FDA-Public Use
  Company Number: None

PATIENT
  Age: 66 Year
  Sex: Male
  Weight: 95.71 kg

DRUGS (1)
  1. DONEPEZIL HCL [Suspect]
     Indication: MEMORY IMPAIRMENT
     Dosage: 1 PIL AT BEDTIME TAKEN BY MOUTH
     Route: 048
     Dates: start: 20130926, end: 20131106

REACTIONS (4)
  - Muscle spasms [None]
  - Muscle twitching [None]
  - Nightmare [None]
  - Middle insomnia [None]
